FAERS Safety Report 8985977 (Version 1)
Quarter: 2012Q4

REPORT INFORMATION
  Report Type: 
  Country: AR (occurrence: AR)
  Receive Date: 20121226
  Receipt Date: 20121226
  Transmission Date: 20130627
  Serious: Yes (Hospitalization)
  Sender: FDA-Public Use
  Company Number: AR-ASTRAZENECA-2012SE94292

PATIENT
  Age: 26298 Day
  Sex: Male

DRUGS (1)
  1. SYMBICORT [Suspect]
     Indication: RESPIRATORY DISORDER
     Dosage: UNKNOWN
     Route: 055
     Dates: start: 20121214

REACTIONS (2)
  - Lung disorder [Unknown]
  - Circumstance or information capable of leading to medication error [Unknown]
